FAERS Safety Report 5634887-1 (Version None)
Quarter: 2008Q1

REPORT INFORMATION
  Report Type: 
  Country: None (occurrence: None)
  Receive Date: 20080222
  Receipt Date: 20080213
  Transmission Date: 20080703
  Serious: Yes (Other)
  Sender: FDA-Public Use
  Company Number: US-WYE-H02607808

PATIENT

DRUGS (1)
  1. SIROLIMUS [Suspect]
     Indication: ORGAN TRANSPLANT

REACTIONS (1)
  - RENAL CELL CARCINOMA [None]
